FAERS Safety Report 4577737-7 (Version None)
Quarter: 2005Q1

REPORT INFORMATION
  Report Type: 
  Country: None (occurrence: None)
  Receive Date: 20050201
  Receipt Date: 20050114
  Transmission Date: 20050727
  Serious: Yes (Other)
  Sender: FDA-Public Use
  Company Number: 601740

PATIENT
  Age: 3 Year

DRUGS (4)
  1. RECOMBINATE [Suspect]
     Indication: FACTOR VIII DEFICIENCY
     Dosage: 60000 IU; PRN
     Dates: start: 20050101, end: 20050101
  2. RECOMBINATE [Suspect]
     Indication: SURGERY
     Dosage: 60000 IU; PRN
     Dates: start: 20050101, end: 20050101
  3. ADVATE (ANTIHEMOPHILIC FACTOR (RECOMBINANT), PLASMA/ALBUMIN FREE METHO [Suspect]
     Indication: FACTOR VIII DEFICIENCY
     Dosage: PRN
     Dates: start: 20050103, end: 20050110
  4. ADVATE (ANTIHEMOPHILIC FACTOR (RECOMBINANT), PLASMA/ALBUMIN FREE METHO [Suspect]
     Indication: SURGERY
     Dosage: PRN
     Dates: start: 20050103, end: 20050110

REACTIONS (1)
  - FACTOR VIII INHIBITION [None]
